FAERS Safety Report 10444673 (Version 2)
Quarter: 2014Q3

REPORT INFORMATION
  Report Type: Spontaneous
  Country: FR (occurrence: FR)
  Receive Date: 20140910
  Receipt Date: 20140926
  Transmission Date: 20150326
  Serious: Yes (Death, Hospitalization)
  Sender: FDA-Public Use
  Company Number: FR-SA-2014SA119452

PATIENT
  Age: 54 Year
  Sex: Female
  Weight: 75 kg

DRUGS (5)
  1. DIMENHYDRINATE. [Suspect]
     Active Substance: DIMENHYDRINATE
     Route: 065
  2. ESTRADIOL. [Suspect]
     Active Substance: ESTRADIOL
     Route: 065
  3. PROZAC [Concomitant]
     Active Substance: FLUOXETINE HYDROCHLORIDE
     Indication: DEPRESSION
  4. BUSPAR [Concomitant]
     Active Substance: BUSPIRONE HYDROCHLORIDE
     Indication: DEPRESSION
  5. STILNOX [Suspect]
     Active Substance: ZOLPIDEM TARTRATE
     Indication: DEPRESSION
     Route: 065

REACTIONS (25)
  - Oedema [Fatal]
  - Blood creatine phosphokinase increased [Unknown]
  - Activated partial thromboplastin time abnormal [Unknown]
  - Antithrombin III decreased [Unknown]
  - Coma [Fatal]
  - Coma scale abnormal [Fatal]
  - Peripheral ischaemia [Unknown]
  - Blood pressure decreased [Fatal]
  - Subclavian artery thrombosis [Unknown]
  - Hypotonia [Fatal]
  - Mydriasis [Fatal]
  - Toxicity to various agents [Fatal]
  - Radial pulse decreased [Unknown]
  - Loss of consciousness [Fatal]
  - Heart rate irregular [Fatal]
  - Cerebral infarction [Fatal]
  - Intracranial pressure increased [Fatal]
  - Hyperlactacidaemia [Unknown]
  - Cyanosis [Unknown]
  - Prothrombin time ratio abnormal [Unknown]
  - Pupillary light reflex tests abnormal [Fatal]
  - Urinary incontinence [Fatal]
  - Decerebrate posture [Fatal]
  - Peripheral coldness [Unknown]
  - Heart rate decreased [Fatal]
